FAERS Safety Report 10373296 (Version 5)
Quarter: 2014Q3

REPORT INFORMATION
  Report Type: Report from Study
  Country: IT (occurrence: IT)
  Receive Date: 20140808
  Receipt Date: 20140826
  Transmission Date: 20150326
  Serious: Yes (Death, Hospitalization)
  Sender: FDA-Public Use
  Company Number: IT-ROCHE-1414936

PATIENT
  Age: 73 Year
  Sex: Male

DRUGS (38)
  1. LANSOPRAZOLE. [Concomitant]
     Active Substance: LANSOPRAZOLE
     Route: 065
     Dates: start: 20140604
  2. SALBUTAMOL [Concomitant]
     Active Substance: ALBUTEROL
     Route: 065
     Dates: start: 20140605, end: 20140606
  3. PARACETAMOL [Concomitant]
     Active Substance: ACETAMINOPHEN
     Route: 048
     Dates: start: 20140402, end: 20140402
  4. PARACETAMOL [Concomitant]
     Active Substance: ACETAMINOPHEN
     Route: 048
     Dates: start: 20140429, end: 20140429
  5. CHLORPHENIRAMINE [Concomitant]
     Active Substance: CHLORPHENIRAMINE
     Route: 042
     Dates: start: 20140408, end: 20140408
  6. OBINUTUZUMAB [Suspect]
     Active Substance: OBINUTUZUMAB
     Dosage: CYCLE 1 DAY 8
     Route: 042
     Dates: start: 20140408, end: 20140408
  7. FUROSEMIDE. [Concomitant]
     Active Substance: FUROSEMIDE
     Route: 042
     Dates: start: 20140513
  8. PARACETAMOL [Concomitant]
     Active Substance: ACETAMINOPHEN
     Route: 048
     Dates: start: 20140408, end: 20140408
  9. CHLORPHENIRAMINE [Concomitant]
     Active Substance: CHLORPHENIRAMINE
     Indication: PROPHYLAXIS
     Route: 042
     Dates: start: 20140401, end: 20140401
  10. CHLORPHENIRAMINE [Concomitant]
     Active Substance: CHLORPHENIRAMINE
     Route: 042
     Dates: start: 20140415, end: 20140415
  11. ASA [Concomitant]
     Active Substance: ASPIRIN
     Route: 065
     Dates: start: 20140604
  12. CHLORPHENIRAMINE [Concomitant]
     Active Substance: CHLORPHENIRAMINE
     Route: 042
     Dates: start: 20140429, end: 20140429
  13. CHLORAMBUCIL [Suspect]
     Active Substance: CHLORAMBUCIL
     Indication: CHRONIC LYMPHOCYTIC LEUKAEMIA
     Dosage: CYCLE 1 DAY 1
     Route: 048
     Dates: start: 20140401, end: 20140401
  14. DELORAZEPAM [Concomitant]
     Active Substance: DELORAZEPAM
     Dosage: 10 DROPS
     Route: 048
     Dates: start: 20140423
  15. ALDACTONE (ITALY) [Concomitant]
     Route: 065
     Dates: start: 20140604
  16. METHYLPREDNISOLONE [Concomitant]
     Active Substance: METHYLPREDNISOLONE
     Indication: PROPHYLAXIS
     Route: 065
     Dates: start: 20140604
  17. OBINUTUZUMAB [Suspect]
     Active Substance: OBINUTUZUMAB
     Indication: CHRONIC LYMPHOCYTIC LEUKAEMIA
     Dosage: CYCLE 1, DAY 1
     Route: 042
     Dates: start: 20140401
  18. OBINUTUZUMAB [Suspect]
     Active Substance: OBINUTUZUMAB
     Dosage: CYCLE 1 DAY 2
     Route: 042
     Dates: start: 20140402, end: 20140402
  19. LANSOPRAZOLE. [Concomitant]
     Active Substance: LANSOPRAZOLE
     Dosage: PROPHYLACTIC ADMINISTRATION
     Route: 048
     Dates: start: 20140328
  20. IPRATROPIUM BROMIDE. [Concomitant]
     Active Substance: IPRATROPIUM BROMIDE
     Route: 065
     Dates: start: 20140605, end: 20140606
  21. PARACETAMOL [Concomitant]
     Active Substance: ACETAMINOPHEN
     Route: 048
     Dates: start: 20140415, end: 20140415
  22. CHLORAMBUCIL [Suspect]
     Active Substance: CHLORAMBUCIL
     Dosage: CYCLE 1 DAY 15. DATE OF LAST DOSE PRIOR TO SERIOUS ADVERSE EVENTS WAS 29/APR/2014.
     Route: 048
     Dates: start: 20140415, end: 20140415
  23. TRIATEC (CODEINE PHOSPHATE/PARACETAMOL) [Concomitant]
     Route: 065
     Dates: start: 20140604
  24. ALLOPURINOL. [Concomitant]
     Active Substance: ALLOPURINOL
     Dosage: PROPHYLACTIC ADMINISTRATION
     Route: 065
     Dates: start: 20140331
  25. MAGALDRATE [Concomitant]
     Active Substance: MAGALDRATE
     Route: 048
     Dates: start: 20140402, end: 20140603
  26. BECLOMETHASONE [Concomitant]
     Active Substance: BECLOMETHASONE
     Route: 065
     Dates: start: 20140605
  27. METHYLPREDNISOLONE [Concomitant]
     Active Substance: METHYLPREDNISOLONE
     Route: 042
     Dates: start: 20140401, end: 20140401
  28. METHYLPREDNISOLONE [Concomitant]
     Active Substance: METHYLPREDNISOLONE
     Route: 042
     Dates: start: 20140402, end: 20140402
  29. METHYLPREDNISOLONE [Concomitant]
     Active Substance: METHYLPREDNISOLONE
     Route: 042
     Dates: start: 20140408, end: 20140408
  30. CHLORPHENIRAMINE [Concomitant]
     Active Substance: CHLORPHENIRAMINE
     Route: 042
     Dates: start: 20140402, end: 20140402
  31. ISONIAZIDE [Concomitant]
     Active Substance: ISONIAZID
     Dosage: PROPHYLACTIC ADMINISTRATION
     Route: 065
     Dates: start: 20140328
  32. PARACETAMOL [Concomitant]
     Active Substance: ACETAMINOPHEN
     Indication: PROPHYLAXIS
     Route: 048
     Dates: start: 20140401, end: 20140401
  33. OBINUTUZUMAB [Suspect]
     Active Substance: OBINUTUZUMAB
     Dosage: CYCLE 1 DAY 15. DATE OF LAST DOSE PRIOR TO SERIOUS ADVERSE EVENTS WAS 29/APR/2014.
     Route: 042
     Dates: start: 20140415, end: 20140415
  34. ASA [Concomitant]
     Active Substance: ASPIRIN
     Route: 048
     Dates: start: 20140328
  35. TRIATEC (CODEINE PHOSPHATE/PARACETAMOL) [Concomitant]
     Dosage: DOSE OTHER, 2.5 + 15 MG
     Route: 048
     Dates: start: 20140328
  36. PYRIDOXIN [Concomitant]
     Active Substance: PYRIDOXINE
     Dosage: PROPHYLACTIC ADMINISTRATION
     Route: 048
     Dates: start: 20140325, end: 20140603
  37. METHYLPREDNISOLONE [Concomitant]
     Active Substance: METHYLPREDNISOLONE
     Route: 042
     Dates: start: 20140415, end: 20140415
  38. METHYLPREDNISOLONE [Concomitant]
     Active Substance: METHYLPREDNISOLONE
     Route: 042
     Dates: start: 20140429, end: 20140429

REACTIONS (1)
  - Pneumonia [Fatal]

NARRATIVE: CASE EVENT DATE: 20140604
